FAERS Safety Report 15312134 (Version 1)
Quarter: 2018Q3

REPORT INFORMATION
  Report Type: Spontaneous
  Country: US (occurrence: US)
  Receive Date: 20180814
  Receipt Date: 20180814
  Transmission Date: 20181010
  Serious: Yes (Hospitalization)
  Sender: FDA-Public Use
  Company Number: None

PATIENT
  Age: 46 Year
  Sex: Female

DRUGS (15)
  1. MULTIVITAMIN [Concomitant]
     Active Substance: VITAMINS
  2. PAIN + FEVER TAB [Concomitant]
  3. TRAMADOL. [Concomitant]
     Active Substance: TRAMADOL
  4. GABAPENTIN. [Concomitant]
     Active Substance: GABAPENTIN
  5. STELARA [Suspect]
     Active Substance: USTEKINUMAB
     Indication: CROHN^S DISEASE
     Dosage: ?          OTHER FREQUENCY:EVERY 8 WEEKS;?
     Route: 058
     Dates: start: 20180406
  6. DICLOFENAC [Concomitant]
     Active Substance: DICLOFENAC
  7. VITAMIN D [Concomitant]
     Active Substance: CHOLECALCIFEROL
  8. AMITRIPTYTLIN [Concomitant]
  9. FUROSEMIDE. [Concomitant]
     Active Substance: FUROSEMIDE
  10. VENOFER [Concomitant]
     Active Substance: IRON SUCROSE
  11. AZATHIOPRINE. [Concomitant]
     Active Substance: AZATHIOPRINE
  12. LASIX [Concomitant]
     Active Substance: FUROSEMIDE
  13. VITAMN C [Concomitant]
  14. CYANOCOBALAM [Concomitant]
     Active Substance: CYANOCOBALAMIN
  15. FOLIC ACID. [Concomitant]
     Active Substance: FOLIC ACID

REACTIONS (2)
  - Surgery [None]
  - Diarrhoea [None]

NARRATIVE: CASE EVENT DATE: 20180813
